FAERS Safety Report 23070351 (Version 1)
Quarter: 2023Q4

REPORT INFORMATION
  Report Type: Spontaneous
  Country: GB (occurrence: GB)
  Receive Date: 20231016
  Receipt Date: 20231016
  Transmission Date: 20240110
  Serious: Yes (Other)
  Sender: FDA-Public Use
  Company Number: None

PATIENT

DRUGS (6)
  1. HYDROCORTISONE SODIUM SUCCINATE [Suspect]
     Active Substance: HYDROCORTISONE SODIUM SUCCINATE
  2. BETNOVATE [Suspect]
     Active Substance: BETAMETHASONE
  3. CLOBETASOL [Suspect]
     Active Substance: CLOBETASOL
     Indication: Eczema
  4. EUMOVATE [Suspect]
     Active Substance: CLOBETASONE BUTYRATE
  5. MOMETASONE [Suspect]
     Active Substance: MOMETASONE
  6. PROTOPIC [Suspect]
     Active Substance: TACROLIMUS

REACTIONS (2)
  - Product prescribing issue [Unknown]
  - Topical steroid withdrawal reaction [Not Recovered/Not Resolved]

NARRATIVE: CASE EVENT DATE: 20200101
